FAERS Safety Report 8808814 (Version 5)
Quarter: 2012Q4

REPORT INFORMATION
  Report Type: 
  Country: JP (occurrence: JP)
  Receive Date: 20120926
  Receipt Date: 20121025
  Transmission Date: 20130627
  Serious: Yes (Other)
  Sender: FDA-Public Use
  Company Number: JP-PFIZER INC-2012235533

PATIENT
  Age: 87 Year
  Sex: Female

DRUGS (7)
  1. LYRICA [Suspect]
     Indication: NEURALGIA
     Dosage: 75 mg, 1x/day
     Route: 048
     Dates: end: 20120921
  2. ALDACTONE A [Suspect]
     Indication: HYPERTENSION
     Dosage: 25 mg, daily
     Route: 048
     Dates: end: 20120921
  3. CELECOX [Suspect]
     Indication: BACK PAIN
     Dosage: 50 mg, 2x/day
     Route: 048
     Dates: end: 20120921
  4. LASIX [Suspect]
     Indication: HYPERTENSION
     Dosage: 20 mg, daily
     Route: 048
     Dates: end: 20120921
  5. SIGMART [Suspect]
     Indication: ANGINA PECTORIS
     Dosage: 15 mg, daily
     Route: 048
     Dates: end: 20120921
  6. HYALEIN [Concomitant]
     Dosage: 5 drops/day
     Route: 047
     Dates: end: 20120921
  7. KARY UNI [Concomitant]
     Dosage: 3 drops/day
     Route: 047
     Dates: end: 20120921

REACTIONS (2)
  - Pancytopenia [Recovered/Resolved]
  - Atrioventricular block complete [Unknown]
